FAERS Safety Report 9012971 (Version 2)
Quarter: 2013Q1

REPORT INFORMATION
  Report Type: Spontaneous
  Country: IN (occurrence: US)
  Receive Date: 20130115
  Receipt Date: 20130121
  Transmission Date: 20140127
  Serious: No
  Sender: FDA-Public Use
  Company Number: IN-009507513-1301IND004149

PATIENT
  Age: 22 Month
  Sex: Male

DRUGS (3)
  1. SINGULAIR [Suspect]
     Indication: HYPERSENSITIVITY
     Dosage: 4 MG, UNK
     Route: 048
  2. SINGULAIR [Suspect]
     Indication: DYSPNOEA
  3. SINGULAIR [Suspect]
     Indication: NASOPHARYNGITIS

REACTIONS (1)
  - Sleep disorder [Unknown]
